FAERS Safety Report 5108238-5 (Version None)
Quarter: 2006Q3

REPORT INFORMATION
  Report Type: 
  Country: None (occurrence: None)
  Receive Date: 20060914
  Receipt Date: 20060914
  Transmission Date: 20061208
  Serious: Yes (Hospitalization)
  Sender: FDA-Public Use
  Company Number: None

PATIENT
  Age: 52 Year
  Sex: Female
  Weight: 101.6057 kg

DRUGS (8)
  1. HYDROCHLOROTHIAZIDE 25MG TAB [Suspect]
     Indication: HYPERTENSION
     Dosage: 25 MG DAILY PO
     Route: 048
     Dates: start: 20060417, end: 20060907
  2. TRAMADOL HCL [Suspect]
     Indication: ARTHRALGIA
     Dosage: 50 MG Q6HR PRN PO
     Route: 048
     Dates: start: 20060724, end: 20060907
  3. LEVOTHYROXINE SODIUM [Concomitant]
  4. LISINOPRIL [Concomitant]
  5. ABLUTEROL INH [Concomitant]
  6. OMEPRAZOLE [Concomitant]
  7. HYDROXYZINE PAMOATE [Concomitant]
  8. ATENOLOL [Concomitant]

REACTIONS (4)
  - ARTHRALGIA [None]
  - ILL-DEFINED DISORDER [None]
  - PANCREATITIS [None]
  - RECTAL POLYP [None]
